FAERS Safety Report 10024112 (Version 1)
Quarter: 2014Q1

REPORT INFORMATION
  Report Type: Spontaneous
  Country: FR (occurrence: None)
  Receive Date: 20140124
  Receipt Date: 20140124
  Transmission Date: 20141002
  Serious: No
  Sender: FDA-Public Use
  Company Number: AXC-2013-000513

PATIENT
  Age: 23 Year
  Sex: Female

DRUGS (3)
  1. URSODEOXYCHOLIC ACID [Suspect]
     Indication: CHOLESTASIS
     Route: 048
     Dates: start: 2013
  2. CELESTENE [Concomitant]
  3. LOXEN (NICARDIPINE HYDROCHLORIDE) [Concomitant]

REACTIONS (4)
  - Postpartum haemorrhage [None]
  - Threatened labour [None]
  - Exposure during pregnancy [None]
  - Caesarean section [None]
